FAERS Safety Report 12174688 (Version 1)
Quarter: 2016Q1

REPORT INFORMATION
  Report Type: Report from Study
  Country: US (occurrence: US)
  Receive Date: 20160314
  Receipt Date: 20160314
  Transmission Date: 20160526
  Serious: No
  Sender: FDA-Public Use
  Company Number: PHEH2016US005541

PATIENT
  Sex: Male

DRUGS (7)
  1. LORTAB [Concomitant]
     Active Substance: ACETAMINOPHEN\HYDROCODONE BITARTRATE
     Indication: RHEUMATOID ARTHRITIS
     Dosage: 7.5 - 325 MG, QD
     Route: 048
  2. AMLODIPINE [Concomitant]
     Active Substance: AMLODIPINE BESYLATE
     Indication: HYPERTENSION
     Dosage: 5 MG, EVERY OTHER DAY
     Route: 048
  3. BC (ASPIRIN\CAFFEINE) [Concomitant]
     Active Substance: ASPIRIN\CAFFEINE
     Indication: HEADACHE
     Route: 048
  4. PROBIOTICS NOS [Concomitant]
     Active Substance: PROBIOTICS NOS
     Indication: SUPPLEMENTATION THERAPY
     Dosage: UNK UNK, QD
     Route: 048
  5. ENTRESTO [Suspect]
     Active Substance: SACUBITRIL\VALSARTAN
     Indication: CARDIAC FAILURE CHRONIC
     Dosage: 50 MG (24/26 MG), BID
     Route: 048
  6. CLONAZEPAM. [Concomitant]
     Active Substance: CLONAZEPAM
     Indication: ANXIETY
     Dosage: 1 MG, QD
     Route: 048
  7. MULTI VIT [Concomitant]
     Indication: SUPPLEMENTATION THERAPY
     Dosage: UNK UNK, QD
     Route: 048

REACTIONS (4)
  - Disorientation [Unknown]
  - Dyspnoea [Unknown]
  - Asthenia [Unknown]
  - Dizziness [Unknown]
